FAERS Safety Report 20493505 (Version 1)
Quarter: 2022Q1

REPORT INFORMATION
  Report Type: Spontaneous
  Country: JP (occurrence: JP)
  Receive Date: 20220221
  Receipt Date: 20220221
  Transmission Date: 20220424
  Serious: Yes (Hospitalization, Other)
  Sender: FDA-Public Use
  Company Number: JP-DSJP-DSJ-2022-105286

PATIENT
  Age: 57 Year
  Sex: Female

DRUGS (10)
  1. DENOSUMAB [Suspect]
     Active Substance: DENOSUMAB
     Indication: Osteoporosis
     Dosage: UNK
     Route: 065
  2. TRASTUZUMAB [Suspect]
     Active Substance: TRASTUZUMAB
     Indication: HER2 positive gastric cancer
     Dosage: 8 MILLIGRAM/KILOGRAM, LOADING DOSE
     Route: 065
  3. TRASTUZUMAB [Suspect]
     Active Substance: TRASTUZUMAB
     Indication: Gastric cancer recurrent
     Dosage: 6 MILLIGRAM/KILOGRAM, Q3WK, DAY1
     Route: 065
  4. TRASTUZUMAB [Suspect]
     Active Substance: TRASTUZUMAB
     Dosage: 8 MILLIGRAM/KILOGRAM
     Route: 065
  5. ENTECAVIR [Concomitant]
     Active Substance: ENTECAVIR
     Indication: Chronic hepatitis B
     Dosage: UNK
     Route: 065
  6. METHYLCOBALAMIN [Concomitant]
     Active Substance: METHYLCOBALAMIN
     Dosage: UNK
     Route: 048
  7. GIMERACIL\OTERACIL\TEGAFUR [Concomitant]
     Active Substance: GIMERACIL\OTERACIL\TEGAFUR
     Indication: HER2 positive gastric cancer
     Dosage: 50 MG, BID, ON A 2-WEEK ON AND 1-WEEK OFF SCHEDULE
     Route: 048
  8. GIMERACIL\OTERACIL\TEGAFUR [Concomitant]
     Active Substance: GIMERACIL\OTERACIL\TEGAFUR
     Indication: Gastric cancer recurrent
     Dosage: UNK
     Route: 048
  9. OXALIPLATIN [Concomitant]
     Active Substance: OXALIPLATIN
     Indication: HER2 positive gastric cancer
     Dosage: 100 MILLIGRAM/SQ. METER
     Route: 042
  10. OXALIPLATIN [Concomitant]
     Active Substance: OXALIPLATIN
     Indication: Gastric cancer recurrent
     Dosage: UNK

REACTIONS (2)
  - Thrombocytopenia [Recovered/Resolved]
  - Infusion related reaction [Recovered/Resolved]
